FAERS Safety Report 15246483 (Version 2)
Quarter: 2018Q3

REPORT INFORMATION
  Report Type: Spontaneous
  Country: US (occurrence: US)
  Receive Date: 20180806
  Receipt Date: 20180829
  Transmission Date: 20181010
  Serious: Yes (Death)
  Sender: FDA-Public Use
  Company Number: US-TEVA-2018-US-936388

PATIENT
  Sex: Male
  Weight: 90 kg

DRUGS (17)
  1. ALBUTEROL. [Concomitant]
     Active Substance: ALBUTEROL
  2. GABAPENTIN. [Concomitant]
     Active Substance: GABAPENTIN
  3. FUROSEMIDE. [Concomitant]
     Active Substance: FUROSEMIDE
  4. FLONASE [Concomitant]
     Active Substance: FLUTICASONE PROPIONATE
  5. OMEPRAZOLE. [Concomitant]
     Active Substance: OMEPRAZOLE
  6. LORAZEPAM. [Concomitant]
     Active Substance: LORAZEPAM
  7. GLIPIZIDE. [Concomitant]
     Active Substance: GLIPIZIDE
  8. MIRAPEX [Concomitant]
     Active Substance: PRAMIPEXOLE DIHYDROCHLORIDE
  9. HYDROCODONE/ APAP [Concomitant]
     Active Substance: ACETAMINOPHEN\HYDROCODONE
  10. ATORVASTATIN [Concomitant]
     Active Substance: ATORVASTATIN
  11. CHOLECALCIFEROL [Concomitant]
     Active Substance: CHOLECALCIFEROL
  12. FLOVENT [Concomitant]
     Active Substance: FLUTICASONE PROPIONATE
  13. PLAVIX [Concomitant]
     Active Substance: CLOPIDOGREL BISULFATE
  14. MONTELUKAST [Concomitant]
     Active Substance: MONTELUKAST SODIUM
  15. NITROGLYCERIN SUBLINGUAL [Concomitant]
     Active Substance: NITROGLYCERIN
  16. SERTRALINE [Concomitant]
     Active Substance: SERTRALINE HYDROCHLORIDE
  17. SYNRIBO [Suspect]
     Active Substance: OMACETAXINE MEPESUCCINATE
     Indication: CHRONIC MYELOID LEUKAEMIA
     Dates: start: 20180703, end: 20180719

REACTIONS (1)
  - Death [Fatal]
